FAERS Safety Report 8058623-7 (Version None)
Quarter: 2012Q1

REPORT INFORMATION
  Report Type: 
  Country: None (occurrence: None)
  Receive Date: 20120120
  Receipt Date: 20120111
  Transmission Date: 20120608
  Serious: Yes (Hospitalization, Other)
  Sender: FDA-Public Use
  Company Number: FR-BRISTOL-MYERS SQUIBB COMPANY-16349235

PATIENT
  Age: 74 Year
  Sex: Female

DRUGS (8)
  1. OXYBUTYNIN [Concomitant]
  2. IRBESARTAN [Concomitant]
  3. FENOFIBRATE [Concomitant]
  4. ACETAMINOPHEN AND TRAMADOL HCL [Concomitant]
  5. NICERGOLINE [Concomitant]
  6. STRUCTUM [Concomitant]
  7. COUMADIN [Suspect]
     Indication: MYOCARDIAL ISCHAEMIA
     Dates: end: 20111114
  8. ZOLPIDEM [Concomitant]

REACTIONS (3)
  - FALL [None]
  - HAEMATOMA [None]
  - HAEMARTHROSIS [None]
